FAERS Safety Report 7623431-5 (Version None)
Quarter: 2011Q3

REPORT INFORMATION
  Report Type: 
  Country: None (occurrence: None)
  Receive Date: 20110720
  Receipt Date: 20110705
  Transmission Date: 20111222
  Serious: Yes (Hospitalization)
  Sender: FDA-Public Use
  Company Number: US-SANOFI-AVENTIS-2011SA044344

PATIENT
  Age: 88 Year
  Sex: Male
  Weight: 54 kg

DRUGS (5)
  1. TOPROL-XL [Concomitant]
  2. DIGOXIN [Concomitant]
  3. ATORVASTATIN [Concomitant]
  4. FUROSEMIDE [Concomitant]
  5. DRONEDARONE HCL [Suspect]
     Indication: ATRIAL FIBRILLATION
     Route: 048
     Dates: start: 20100920

REACTIONS (6)
  - PNEUMONIA [None]
  - INFECTIOUS PERITONITIS [None]
  - DIARRHOEA [None]
  - COLOSTOMY CLOSURE [None]
  - LARGE INTESTINE PERFORATION [None]
  - CELLULITIS [None]
